FAERS Safety Report 10094485 (Version 1)
Quarter: 2014Q2

REPORT INFORMATION
  Report Type: Spontaneous
  Country: GB (occurrence: GB)
  Receive Date: 20140422
  Receipt Date: 20140422
  Transmission Date: 20141212
  Serious: Yes (Hospitalization, Other)
  Sender: FDA-Public Use
  Company Number: GB-TEVA-475753ISR

PATIENT
  Age: 67 Year
  Sex: Male

DRUGS (16)
  1. RAMIPRIL [Suspect]
     Indication: LEFT VENTRICULAR DYSFUNCTION
     Dosage: 10 MILLIGRAM DAILY;
     Route: 048
  2. EPLERENONE [Suspect]
     Indication: LEFT VENTRICULAR DYSFUNCTION
     Dosage: 25 MILLIGRAM DAILY;
     Route: 048
  3. FUROSEMIDE SODIUM [Suspect]
     Indication: LEFT VENTRICULAR DYSFUNCTION
     Dosage: 40MG 2 MORNING AND ONE AT LUNCHTIME
     Route: 048
  4. ORAMORPH [Suspect]
     Indication: BACK PAIN
     Dosage: 40 MILLIGRAM DAILY; 10MG PRN QDS BUT POSSIBLE INCREASE IN DOSES PRIOR TO ADMISSION TO HOSPITAL
     Route: 048
  5. ZOMORPH [Suspect]
     Indication: BACK PAIN
     Dosage: 20MG MR OM AND 10MG MR AT NIGHT BUT POSSIBLE INCREASED DOSE PRIOR TO ADMISSION DUE TO INCREASED PAIN
     Route: 048
  6. ATORVASTATIN [Concomitant]
     Dosage: 40 MILLIGRAM DAILY; ONE AT NIGHT.
  7. METFORMIN [Concomitant]
     Dosage: 2 GRAM DAILY; 1G IN THE MORNING AND EVENING.
  8. NOVOMIX [Concomitant]
     Dosage: 10 IU (INTERNATIONAL UNIT) DAILY; 10 UNITS AT TEATIME.
  9. WARFARIN [Concomitant]
  10. ALLOPURINOL [Concomitant]
     Dosage: 100 MILLIGRAM DAILY; ONE AT NIGHT.
  11. AMITRIPTYLINE [Concomitant]
     Dosage: 50 MILLIGRAM DAILY; ONE AT NIGHT.
  12. BISOPROLOL [Concomitant]
     Dosage: 10 MILLIGRAM DAILY;
  13. DIGOXIN [Concomitant]
     Dosage: 125 MICROGRAM DAILY;
  14. RANITIDINE [Concomitant]
     Dosage: 300 MILLIGRAM DAILY;
  15. SAXAGLIPTIN [Concomitant]
     Dosage: 10 MILLIGRAM DAILY;
  16. VICTOZA [Concomitant]
     Dosage: 1.2 MILLIGRAM DAILY; 1.2MG AT LUNCHTIME

REACTIONS (5)
  - Toxicity to various agents [Recovered/Resolved]
  - Renal failure acute [Recovered/Resolved]
  - Lethargy [Recovered/Resolved]
  - Escherichia sepsis [Recovered/Resolved]
  - Vomiting [Recovered/Resolved]
